FAERS Safety Report 13738648 (Version 1)
Quarter: 2017Q3

REPORT INFORMATION
  Report Type: Spontaneous
  Country: US (occurrence: US)
  Receive Date: 20170710
  Receipt Date: 20170710
  Transmission Date: 20171127
  Serious: No
  Sender: FDA-Public Use
  Company Number: US-SAOL THERAPEUTICS-2017SAO00227

PATIENT
  Age: 55 Year
  Sex: Male

DRUGS (9)
  1. FENTANYL. [Suspect]
     Active Substance: FENTANYL
     Dosage: 649.8 UNK, UNK
     Route: 037
     Dates: start: 20150630
  2. BACLOFEN. [Suspect]
     Active Substance: BACLOFEN
     Indication: INTERVERTEBRAL DISC DEGENERATION
     Dosage: 6.998 UNK, UNK
     Route: 037
     Dates: start: 20150630
  3. FENTANYL. [Suspect]
     Active Substance: FENTANYL
     Dosage: 450.2 UNK, UNK
     Route: 037
     Dates: start: 201504
  4. CLONIDINE. [Suspect]
     Active Substance: CLONIDINE
     Dosage: 11.256 UNK, UNK
     Route: 037
     Dates: start: 201504
  5. PRIALT [Suspect]
     Active Substance: ZICONOTIDE ACETATE
     Dosage: UNK
     Route: 037
     Dates: start: 20140311, end: 201403
  6. DILAUDID [Suspect]
     Active Substance: HYDROMORPHONE HYDROCHLORIDE
     Dosage: 13.507 UNK, UNK
     Route: 037
     Dates: start: 201504
  7. DILAUDID [Suspect]
     Active Substance: HYDROMORPHONE HYDROCHLORIDE
     Dosage: 12.995 UNK, UNK
     Route: 037
     Dates: start: 20150630
  8. MORPHINE [Concomitant]
     Active Substance: MORPHINE
     Dosage: 90 MG, \DAY
     Route: 048
  9. BACLOFEN. [Suspect]
     Active Substance: BACLOFEN
     Indication: PAIN
     Dosage: 67.54 ?G, \DAY
     Route: 037

REACTIONS (5)
  - Nausea [Unknown]
  - Pain [Unknown]
  - Decreased appetite [Unknown]
  - Malaise [Unknown]
  - Drug ineffective for unapproved indication [Unknown]

NARRATIVE: CASE EVENT DATE: 20081204
